FAERS Safety Report 10622496 (Version 1)
Quarter: 2014Q4

REPORT INFORMATION
  Report Type: Spontaneous
  Country: US (occurrence: US)
  Receive Date: 20141203
  Receipt Date: 20141203
  Transmission Date: 20150529
  Serious: Yes (Hospitalization, Other)
  Sender: FDA-Public Use
  Company Number: US-GLAXOSMITHKLINE-US2014GSK027382

PATIENT
  Age: 88 Year
  Sex: Male

DRUGS (10)
  1. ADVAIR DISKUS [Suspect]
     Active Substance: FLUTICASONE PROPIONATE\SALMETEROL XINAFOATE
     Indication: CHRONIC OBSTRUCTIVE PULMONARY DISEASE
     Dosage: UNK UNK, BID
     Route: 055
  2. TEMAZEPAM. [Concomitant]
     Active Substance: TEMAZEPAM
  3. LEXAPRO [Concomitant]
     Active Substance: ESCITALOPRAM OXALATE
  4. FLECAINIDE [Concomitant]
     Active Substance: FLECAINIDE
  5. METFORMIN [Concomitant]
     Active Substance: METFORMIN HYDROCHLORIDE
  6. SIMVASTATIN. [Concomitant]
     Active Substance: SIMVASTATIN
  7. FINASTERIDE. [Concomitant]
     Active Substance: FINASTERIDE
  8. ADVAIR DISKUS [Suspect]
     Active Substance: FLUTICASONE PROPIONATE\SALMETEROL XINAFOATE
     Indication: BRONCHITIS
  9. FLUDROCORTISONE [Concomitant]
     Active Substance: FLUDROCORTISONE
  10. LISINOPRIL. [Concomitant]
     Active Substance: LISINOPRIL

REACTIONS (8)
  - Fatigue [Recovered/Resolved]
  - Gait disturbance [Recovered/Resolved]
  - Dysstasia [Recovering/Resolving]
  - Renal failure [Recovered/Resolved]
  - Pulmonary oedema [Recovered/Resolved]
  - Transient ischaemic attack [Recovered/Resolved]
  - Dehydration [Recovered/Resolved]
  - Decreased appetite [Not Recovered/Not Resolved]

NARRATIVE: CASE EVENT DATE: 201306
